FAERS Safety Report 6912931-9 (Version None)
Quarter: 2010Q3

REPORT INFORMATION
  Report Type: 
  Country: None (occurrence: None)
  Receive Date: 20100806
  Receipt Date: 20090401
  Transmission Date: 20110219
  Serious: No
  Sender: FDA-Public Use
  Company Number: US-PFIZER INC-2009165569

PATIENT
  Sex: Female
  Weight: 76.7 kg

DRUGS (8)
  1. DETROL LA [Suspect]
     Indication: HYPERTONIC BLADDER
     Dosage: 4 MG, 1X/DAY
     Route: 048
     Dates: start: 20090126
  2. DETROL LA [Suspect]
     Indication: INCONTINENCE
  3. DETROL LA [Suspect]
     Indication: CYSTITIS INTERSTITIAL
  4. ALBUTEROL [Concomitant]
     Dosage: UNK
     Route: 048
  5. SINGULAIR [Concomitant]
     Dosage: UNK
     Route: 048
  6. ZYRTEC [Concomitant]
     Dosage: UNK
     Route: 048
  7. VASOTEC [Concomitant]
     Dosage: UNK
     Route: 048
  8. NEXIUM [Concomitant]
     Indication: GASTROOESOPHAGEAL REFLUX DISEASE
     Dosage: UNK
     Route: 048

REACTIONS (3)
  - COUGH [None]
  - DYSPHONIA [None]
  - OROPHARYNGEAL PAIN [None]
